FAERS Safety Report 8320661 (Version 2)
Quarter: 2012Q4

REPORT INFORMATION
  Report Type: 
  Country: JP (occurrence: JP)
  Receive Date: 20120104
  Receipt Date: 20120927
  Transmission Date: 20130627
  Serious: Yes (Other)
  Sender: FDA-Public Use
  Company Number: JP-ASTELLAS-2012US000010

PATIENT
  Age: 69 Year
  Sex: Female

DRUGS (1)
  1. TARCEVA [Suspect]
     Indication: LUNG CANCER METASTATIC
     Dosage: 150 mg, UID/QD
     Route: 048

REACTIONS (2)
  - Cutaneous vasculitis [Recovered/Resolved]
  - Lung neoplasm malignant [Unknown]
